FAERS Safety Report 16711307 (Version 1)
Quarter: 2019Q3

REPORT INFORMATION
  Report Type: Spontaneous
  Country: US (occurrence: US)
  Receive Date: 20190816
  Receipt Date: 20190816
  Transmission Date: 20191004
  Serious: No
  Sender: FDA-Public Use
  Company Number: US-GLAXOSMITHKLINE-US2019AMR147460

PATIENT
  Sex: Female

DRUGS (1)
  1. WELLBUTRIN XL [Suspect]
     Active Substance: BUPROPION HYDROCHLORIDE
     Indication: DRUG THERAPY ENHANCEMENT
     Route: 065

REACTIONS (4)
  - Fatigue [Unknown]
  - Therapy cessation [Unknown]
  - Depression [Unknown]
  - Product use in unapproved indication [Unknown]
